FAERS Safety Report 22390196 (Version 8)
Quarter: 2024Q2

REPORT INFORMATION
  Report Type: Spontaneous
  Country: CA (occurrence: CA)
  Receive Date: 20230531
  Receipt Date: 20240429
  Transmission Date: 20240716
  Serious: Yes (Other)
  Sender: FDA-Public Use
  Company Number: CA-PFIZER INC-202300205767

PATIENT
  Age: 35 Year
  Sex: Male

DRUGS (2)
  1. ABRILADA [Suspect]
     Active Substance: ADALIMUMAB-AFZB
     Indication: Crohn^s disease
     Dosage: 1 DF, 160 MG AT WEEK 0, 80 MG AT WEEK 2 AND 40MG EVERY OTHER WEEK BEGINNING AT WEEK 4
     Route: 058
     Dates: start: 20230227
  2. ABRILADA [Suspect]
     Active Substance: ADALIMUMAB-AFZB
     Dosage: 1 DF, 160 MG AT WEEK 0, 80 MG AT WEEK 2 AND 40MG EVERY OTHER WEEK BEGINNING AT WEEK 4
     Route: 058
     Dates: start: 20230522

REACTIONS (3)
  - Uveitis [Recovered/Resolved]
  - Injection site pain [Unknown]
  - Needle issue [Unknown]

NARRATIVE: CASE EVENT DATE: 20230101
